FAERS Safety Report 8088944-3 (Version None)
Quarter: 2012Q1

REPORT INFORMATION
  Report Type: 
  Country: None (occurrence: None)
  Receive Date: 20120128
  Receipt Date: 20110630
  Transmission Date: 20120608
  Serious: Yes (Hospitalization)
  Sender: FDA-Public Use
  Company Number: US-ABBOTT-11P-163-0734947-00

PATIENT
  Sex: Female
  Weight: 50.848 kg

DRUGS (2)
  1. MELOXICAM [Suspect]
     Indication: RHEUMATOID ARTHRITIS
     Dates: start: 20110501, end: 20110602
  2. HUMIRA [Suspect]
     Indication: RHEUMATOID ARTHRITIS
     Dosage: ONCE, 1ST DOSE
     Dates: start: 20110526, end: 20110526

REACTIONS (6)
  - PURPURA [None]
  - INJECTION SITE REACTION [None]
  - PRURITUS GENERALISED [None]
  - INJECTION SITE ERYTHEMA [None]
  - INJECTION SITE RASH [None]
  - INJECTION SITE PRURITUS [None]
